FAERS Safety Report 23686435 (Version 1)
Quarter: 2024Q1

REPORT INFORMATION
  Report Type: Spontaneous
  Country: IN (occurrence: IN)
  Receive Date: 20240329
  Receipt Date: 20240329
  Transmission Date: 20240410
  Serious: Yes (Hospitalization, Other)
  Sender: FDA-Public Use
  Company Number: None

PATIENT
  Age: 33 Year
  Sex: Female

DRUGS (6)
  1. PREDNISOLONE [Suspect]
     Active Substance: PREDNISOLONE
     Indication: Proteus infection
     Dosage: 30 MILLIGRAM PER DAY (TABLET)
     Route: 065
  2. CALCIUM [Concomitant]
     Active Substance: CALCIUM
     Indication: Mineral supplementation
     Dosage: UNK
     Route: 065
  3. FERROUS SULFATE [Concomitant]
     Active Substance: FERROUS SULFATE
     Indication: Supplementation therapy
     Dosage: UNK
     Route: 065
  4. FUSIDIC ACID [Concomitant]
     Active Substance: FUSIDIC ACID
     Indication: Product used for unknown indication
     Dosage: UNK
     Route: 065
  5. SALINE [Concomitant]
     Active Substance: SODIUM CHLORIDE
     Indication: Product used for unknown indication
     Dosage: UNK
     Route: 065
  6. TRIAMCINOLONE [Concomitant]
     Active Substance: TRIAMCINOLONE
     Indication: Proteus infection
     Dosage: UNK, EVERY 12 HRS (BID)
     Route: 048

REACTIONS (3)
  - Gait disturbance [Unknown]
  - Dyspnoea [Unknown]
  - Erythema [Unknown]
